FAERS Safety Report 18012949 (Version 1)
Quarter: 2020Q3

REPORT INFORMATION
  Report Type: Spontaneous
  Country: CL (occurrence: CL)
  Receive Date: 20200713
  Receipt Date: 20200713
  Transmission Date: 20201103
  Serious: Yes (Other)
  Sender: FDA-Public Use
  Company Number: CL-SUN PHARMACEUTICAL INDUSTRIES LTD-2020RR-253475

PATIENT
  Age: 49 Year
  Sex: Female

DRUGS (2)
  1. IMATINIB. [Suspect]
     Active Substance: IMATINIB MESYLATE
     Indication: PRODUCT USED FOR UNKNOWN INDICATION
     Dosage: UNK
     Route: 065
  2. CARBOXYMALTOSE IRON [Suspect]
     Active Substance: FERRIC CARBOXYMALTOSE
     Indication: PRODUCT USED FOR UNKNOWN INDICATION
     Dosage: 1000 MILLIGRAMS, ONE TIME
     Route: 042

REACTIONS (5)
  - Hypophosphataemia [Unknown]
  - Muscular weakness [Unknown]
  - Insomnia [Unknown]
  - Paraesthesia [Unknown]
  - Anaemia [Unknown]
